FAERS Safety Report 5369822-7 (Version None)
Quarter: 2007Q2

REPORT INFORMATION
  Report Type: 
  Country: None (occurrence: None)
  Receive Date: 20070625
  Receipt Date: 20070613
  Transmission Date: 20071010
  Serious: Yes (Hospitalization)
  Sender: FDA-Public Use
  Company Number: FR-GILEAD-2006-0010423

PATIENT
  Sex: Male
  Weight: 45 kg

DRUGS (3)
  1. TRUVADA [Suspect]
     Indication: HIV INFECTION
     Route: 048
     Dates: start: 20060614
  2. SUSTIVA [Concomitant]
     Indication: HIV INFECTION
     Route: 048
     Dates: start: 20060718
  3. FUZEON [Concomitant]
     Indication: HIV INFECTION
     Dates: start: 20060614, end: 20060718

REACTIONS (2)
  - BONE TUBERCULOSIS [None]
  - KAPOSI'S SARCOMA [None]
